FAERS Safety Report 18713319 (Version 1)
Quarter: 2021Q1

REPORT INFORMATION
  Report Type: Spontaneous
  Country: FR (occurrence: FR)
  Receive Date: 20210107
  Receipt Date: 20210107
  Transmission Date: 20210419
  Serious: Yes (Other)
  Sender: FDA-Public Use
  Company Number: FR-PFIZER INC-2021008718

PATIENT
  Weight: 65 kg

DRUGS (7)
  1. ENCORAFENIB [Suspect]
     Active Substance: ENCORAFENIB
     Dosage: 150 MG/DAY
     Route: 065
     Dates: start: 20200915, end: 20201007
  2. CETUXIMAB. [Suspect]
     Active Substance: CETUXIMAB
     Dosage: 250 MG/M2, UNK
     Dates: start: 20201208
  3. ENCORAFENIB [Suspect]
     Active Substance: ENCORAFENIB
     Indication: COLORECTAL CANCER METASTATIC
     Dosage: 300 MG/DAY
     Route: 065
     Dates: end: 20200901
  4. ENCORAFENIB [Suspect]
     Active Substance: ENCORAFENIB
     Dosage: 150 MG/DAY
     Route: 065
     Dates: start: 20201208
  5. ENCORAFENIB [Suspect]
     Active Substance: ENCORAFENIB
     Dosage: 225 MG/DAY
     Route: 065
     Dates: start: 20200901, end: 20200915
  6. CETUXIMAB. [Suspect]
     Active Substance: CETUXIMAB
     Indication: COLORECTAL CANCER METASTATIC
     Dosage: 225 MG/M2, UNK
     Dates: end: 20200901
  7. CETUXIMAB. [Suspect]
     Active Substance: CETUXIMAB
     Dosage: 250 MG/M2, UNK
     Dates: start: 20200901, end: 20201007

REACTIONS (10)
  - Fracture pain [Unknown]
  - Skin abrasion [Unknown]
  - Visual acuity reduced [Unknown]
  - Melanocytic naevus [Unknown]
  - Condition aggravated [Unknown]
  - Visual impairment [Unknown]
  - Hyperkeratosis [Unknown]
  - Cholestasis [Unknown]
  - Dermal cyst [Unknown]
  - General physical health deterioration [Unknown]

NARRATIVE: CASE EVENT DATE: 202009
